FAERS Safety Report 12170187 (Version 2)
Quarter: 2016Q2

REPORT INFORMATION
  Report Type: Spontaneous
  Country: US (occurrence: US)
  Receive Date: 20160311
  Receipt Date: 20160414
  Transmission Date: 20160815
  Serious: No
  Sender: FDA-Public Use
  Company Number: US-TEVA-635704ACC

PATIENT
  Age: 24 Year
  Sex: Female
  Weight: 47.67 kg

DRUGS (2)
  1. LITHIUM. [Concomitant]
     Active Substance: LITHIUM
     Indication: INSOMNIA
  2. TAKE ACTION [Suspect]
     Active Substance: LEVONORGESTREL
     Indication: POST COITAL CONTRACEPTION
     Dates: start: 20160205, end: 20160205

REACTIONS (3)
  - Vaginal haemorrhage [Recovered/Resolved]
  - Abdominal pain lower [Recovered/Resolved]
  - Urinary tract infection [Recovered/Resolved]

NARRATIVE: CASE EVENT DATE: 20160210
